FAERS Safety Report 9158041 (Version 1)
Quarter: 2013Q1

REPORT INFORMATION
  Report Type: Spontaneous
  Country: DE (occurrence: DE)
  Receive Date: 20130312
  Receipt Date: 20130312
  Transmission Date: 20140127
  Serious: Yes (Other)
  Sender: FDA-Public Use
  Company Number: DE-ASTRAZENECA-2012SE54135

PATIENT
  Sex: Female

DRUGS (1)
  1. SEROQUEL PROLONG [Suspect]
     Indication: AFFECTIVE DISORDER
     Route: 048
     Dates: start: 20100125

REACTIONS (4)
  - Exposure during pregnancy [Unknown]
  - Retained placenta or membranes [Recovered/Resolved]
  - Blood pressure increased [Unknown]
  - Liver function test abnormal [Recovered/Resolved]
